FAERS Safety Report 8957111 (Version 1)
Quarter: 2012Q4

REPORT INFORMATION
  Report Type: Spontaneous
  Country: US (occurrence: None)
  Receive Date: 20121205
  Receipt Date: 20121205
  Transmission Date: 20130627
  Serious: Yes (Other)
  Sender: FDA-Public Use
  Company Number: None

PATIENT
  Age: 77 Year
  Sex: Female
  Weight: 79.38 kg

DRUGS (1)
  1. ATORVASTATIN 20MG [Suspect]
     Indication: STROKE
     Dates: start: 20121203, end: 20121203

REACTIONS (5)
  - Muscle spasms [None]
  - Muscular weakness [None]
  - Muscle atrophy [None]
  - Dizziness [None]
  - Localised intraabdominal fluid collection [None]
